FAERS Safety Report 15200637 (Version 2)
Quarter: 2018Q3

REPORT INFORMATION
  Report Type: Spontaneous
  Country: US (occurrence: US)
  Receive Date: 20180726
  Receipt Date: 20180912
  Transmission Date: 20181010
  Serious: No
  Sender: FDA-Public Use
  Company Number: US-GLENMARK PHARMACEUTICALS-2018GMK035866

PATIENT

DRUGS (2)
  1. KETOCONAZOLE. [Concomitant]
     Active Substance: KETOCONAZOLE
     Indication: FUNGAL SKIN INFECTION
     Dosage: UNK
     Route: 065
  2. CLOTRIMAZOLE. [Suspect]
     Active Substance: CLOTRIMAZOLE
     Indication: FUNGAL SKIN INFECTION
     Dosage: UNK
     Route: 061
     Dates: start: 20180525, end: 20180527

REACTIONS (2)
  - Drug ineffective [Unknown]
  - No adverse event [Unknown]
